FAERS Safety Report 4577814-0 (Version None)
Quarter: 2005Q1

REPORT INFORMATION
  Report Type: 
  Country: None (occurrence: None)
  Receive Date: 20050209
  Receipt Date: 20050126
  Transmission Date: 20050727
  Serious: Yes (Hospitalization, Other)
  Sender: FDA-Public Use
  Company Number: USA041184543

PATIENT
  Age: 51 Year
  Sex: Female

DRUGS (2)
  1. STRATTERA [Suspect]
     Indication: ATTENTION DEFICIT/HYPERACTIVITY DISORDER
     Dosage: 80 MG DAY
  2. SYNTHROID [Concomitant]

REACTIONS (17)
  - AURA [None]
  - BODY TEMPERATURE INCREASED [None]
  - CONFABULATION [None]
  - CONFUSIONAL STATE [None]
  - COORDINATION ABNORMAL [None]
  - DECEREBRATION [None]
  - DYSKINESIA [None]
  - ENCEPHALITIS VIRAL [None]
  - FEAR [None]
  - GRAND MAL CONVULSION [None]
  - KORSAKOFF'S PSYCHOSIS NON-ALCOHOLIC [None]
  - LOSS OF CONSCIOUSNESS [None]
  - MYALGIA [None]
  - NAUSEA [None]
  - PROTEIN TOTAL INCREASED [None]
  - VIRAL INFECTION [None]
  - VOMITING [None]
